FAERS Safety Report 4928540-7 (Version None)
Quarter: 2006Q1

REPORT INFORMATION
  Report Type: 
  Country: None (occurrence: None)
  Receive Date: 20060223
  Receipt Date: 20060131
  Transmission Date: 20060701
  Serious: Yes (Other)
  Sender: FDA-Public Use
  Company Number: USA050290495

PATIENT
  Age: 32 Year
  Sex: Female

DRUGS (2)
  1. PROZAC [Suspect]
     Indication: OBSESSIVE-COMPULSIVE DISORDER
     Dosage: 80 MG, DAILY (1/D),
     Dates: start: 20020101
  2. ZYRTEC [Concomitant]

REACTIONS (3)
  - CAESAREAN SECTION [None]
  - DRUG EXPOSURE DURING PREGNANCY [None]
  - PRE-ECLAMPSIA [None]
